FAERS Safety Report 19782539 (Version 2)
Quarter: 2021Q3

REPORT INFORMATION
  Report Type: Report from Study
  Country: FR (occurrence: FR)
  Receive Date: 20210902
  Receipt Date: 20210907
  Transmission Date: 20211014
  Serious: Yes (Death)
  Sender: FDA-Public Use
  Company Number: FR-PFIZER INC-202101123113

PATIENT
  Age: 79 Year
  Sex: Male

DRUGS (7)
  1. CETIRIZINE [Concomitant]
     Active Substance: CETIRIZINE HYDROCHLORIDE
     Indication: PRURITUS
     Dosage: 10 MG, DAILY
     Route: 048
     Dates: start: 20210806
  2. TOCILIZUMAB. [Concomitant]
     Active Substance: TOCILIZUMAB
     Indication: COVID-19
     Dosage: 600 G, DAILY
     Route: 042
     Dates: start: 20210810, end: 20210810
  3. LOVENOX [Concomitant]
     Active Substance: ENOXAPARIN SODIUM
     Indication: THROMBOSIS PROPHYLAXIS
     Dosage: 0.8 ML, DAILY
     Route: 058
     Dates: start: 20210806
  4. LEXOMIL [Concomitant]
     Active Substance: BROMAZEPAM
     Indication: INSOMNIA
     Dosage: 3 MG, DAILY
     Route: 048
     Dates: start: 20210806
  5. BEVACIZUMAB. [Suspect]
     Active Substance: BEVACIZUMAB
     Dosage: 7.5 MG/KG
     Route: 041
     Dates: start: 20210811, end: 20210811
  6. ULTIBRO BREEZHALER [GLYCOPYRRONIUM BROMIDE;INDACATEROL MALEATE] [Concomitant]
     Active Substance: GLYCOPYRRONIUM\INDACATEROL
     Indication: CHRONIC OBSTRUCTIVE PULMONARY DISEASE
     Dosage: 1 DF, DAILY
     Route: 055
  7. DEXAMETHASONE. [Concomitant]
     Active Substance: DEXAMETHASONE
     Indication: COVID-19
     Dosage: 6 MG, DAILY
     Route: 042
     Dates: start: 20210807, end: 20210817

REACTIONS (1)
  - COVID-19 pneumonia [Fatal]

NARRATIVE: CASE EVENT DATE: 20210811
